FAERS Safety Report 13468850 (Version 1)
Quarter: 2017Q2

REPORT INFORMATION
  Report Type: Spontaneous
  Country: US (occurrence: US)
  Receive Date: 20170421
  Receipt Date: 20170421
  Transmission Date: 20170830
  Serious: Yes (Other)
  Sender: FDA-Public Use
  Company Number: US-TEVA-761714USA

PATIENT
  Age: 37 Year
  Sex: Male

DRUGS (2)
  1. AMPYRA [Concomitant]
     Active Substance: DALFAMPRIDINE
  2. COPAXONE [Suspect]
     Active Substance: GLATIRAMER ACETATE
     Indication: MULTIPLE SCLEROSIS
     Route: 058
     Dates: start: 201409

REACTIONS (3)
  - Fatigue [Unknown]
  - Multiple sclerosis relapse [Unknown]
  - Bladder disorder [Unknown]

NARRATIVE: CASE EVENT DATE: 20170401
